FAERS Safety Report 14974468 (Version 1)
Quarter: 2018Q2

REPORT INFORMATION
  Report Type: Spontaneous
  Country: US (occurrence: US)
  Receive Date: 20180514
  Receipt Date: 20180514
  Transmission Date: 20180711
  Serious: Yes (Life-Threatening, Hospitalization)
  Sender: FDA-Public Use
  Company Number: None

PATIENT
  Age: 62 Year
  Sex: Female
  Weight: 111.2 kg

DRUGS (1)
  1. EVOLOCUMAB [Suspect]
     Active Substance: EVOLOCUMAB
     Route: 058

REACTIONS (4)
  - Respiratory failure [None]
  - Angina unstable [None]
  - Arteriosclerosis coronary artery [None]
  - Post procedural haemorrhage [None]

NARRATIVE: CASE EVENT DATE: 20180427
